FAERS Safety Report 23634630 (Version 1)
Quarter: 2024Q1

REPORT INFORMATION
  Report Type: Report from Study
  Country: US (occurrence: US)
  Receive Date: 20240315
  Receipt Date: 20240315
  Transmission Date: 20240410
  Serious: No
  Sender: FDA-Public Use
  Company Number: US-AstraZeneca-CH-00583703A

PATIENT
  Age: 70 Year
  Sex: Female

DRUGS (1)
  1. STRENSIQ [Suspect]
     Active Substance: ASFOTASE ALFA
     Indication: Hypophosphatasia
     Dosage: 138 MILLIGRAM, TIW
     Route: 058
     Dates: start: 20240310

REACTIONS (2)
  - Flushing [Unknown]
  - Injection site pain [Unknown]

NARRATIVE: CASE EVENT DATE: 20240310
